FAERS Safety Report 19743792 (Version 1)
Quarter: 2021Q3

REPORT INFORMATION
  Report Type: Spontaneous
  Country: FR (occurrence: FR)
  Receive Date: 20210824
  Receipt Date: 20210824
  Transmission Date: 20211014
  Serious: Yes (Hospitalization)
  Sender: FDA-Public Use
  Company Number: FR-BAXTER-2021BAX025880

PATIENT
  Age: 47 Year
  Sex: Male
  Weight: 92 kg

DRUGS (16)
  1. VINCRISTINE SULFATE. [Suspect]
     Active Substance: VINCRISTINE SULFATE
     Indication: HODGKIN^S DISEASE
     Dosage: 2 MG ON D8
     Route: 041
     Dates: start: 20210629, end: 20210629
  2. ETOPOSIDE. [Suspect]
     Active Substance: ETOPOSIDE
     Dosage: 400 MG ON D1
     Route: 041
     Dates: start: 20210622, end: 20210622
  3. CELLTOP 50 MG, CAPSULE [Suspect]
     Active Substance: ETOPOSIDE
     Dosage: 200 MG TWICE PER DAY ON D2 AND D3
     Route: 048
     Dates: start: 20210623, end: 20210624
  4. ENDOXAN 1000 MG, POUDRE POUR SOLUTIONINJECTABLE [Suspect]
     Active Substance: CYCLOPHOSPHAMIDE
     Dosage: 2500MG
     Route: 041
     Dates: start: 20210622, end: 20210622
  5. PREDNISONE. [Suspect]
     Active Substance: PREDNISONE
     Indication: HODGKIN^S DISEASE
     Dosage: 80 MG PER DAY FOR 6 DAYS
     Route: 048
     Dates: start: 20210714, end: 20210719
  6. PREDNISONE. [Suspect]
     Active Substance: PREDNISONE
     Dosage: 80MG PAR JOUR PENDANT 11 JOURS
     Route: 048
     Dates: start: 20210623, end: 20210628
  7. DOXIL [Suspect]
     Active Substance: DOXORUBICIN HYDROCHLORIDE
     Dosage: 70MG
     Route: 041
     Dates: start: 20210622, end: 20210622
  8. METHYLPREDNISOLONE. [Suspect]
     Active Substance: METHYLPREDNISOLONE
     Dosage: 80MG ON D1
     Route: 041
     Dates: start: 20210713, end: 20210713
  9. ENDOXAN 1000 MG, POUDRE POUR SOLUTIONINJECTABLE [Suspect]
     Active Substance: CYCLOPHOSPHAMIDE
     Indication: HODGKIN^S DISEASE
     Dosage: 2500MG
     Route: 041
     Dates: start: 20210713, end: 20210713
  10. PROCARBAZINE [Suspect]
     Active Substance: PROCARBAZINE
     Indication: HODGKIN^S DISEASE
     Dosage: 200 MG PER DAY FOR 7 DAYS
     Route: 048
     Dates: start: 20210623, end: 20210629
  11. ETOPOSIDE. [Suspect]
     Active Substance: ETOPOSIDE
     Indication: HODGKIN^S DISEASE
     Dosage: 400 MG ON D1
     Route: 041
     Dates: start: 20210713, end: 20210713
  12. CELLTOP 50 MG, CAPSULE [Suspect]
     Active Substance: ETOPOSIDE
     Indication: HODGKIN^S DISEASE
     Dosage: 200 MG TWICE PER DAY ON D2 AND D3
     Route: 048
     Dates: start: 20210714, end: 20210715
  13. BLEOMYCIN [Suspect]
     Active Substance: BLEOMYCIN SULFATE
     Indication: HODGKIN^S DISEASE
     Dosage: 20 MG ON D8
     Route: 041
     Dates: start: 20210629, end: 20210629
  14. DOXIL [Suspect]
     Active Substance: DOXORUBICIN HYDROCHLORIDE
     Indication: HODGKIN^S DISEASE
     Dosage: 70MG
     Route: 041
     Dates: start: 20210713, end: 20210713
  15. METHYLPREDNISOLONE. [Suspect]
     Active Substance: METHYLPREDNISOLONE
     Indication: HODGKIN^S DISEASE
     Dosage: 80MG ON D1
     Route: 041
     Dates: start: 20210622, end: 20210622
  16. PROCARBAZINE [Suspect]
     Active Substance: PROCARBAZINE
     Dosage: 200 MG PER DAY FOR 7 DAYS
     Route: 048
     Dates: start: 20210714, end: 20210720

REACTIONS (2)
  - Coronary artery thrombosis [Recovering/Resolving]
  - Myocardial infarction [Recovering/Resolving]

NARRATIVE: CASE EVENT DATE: 20210719
